FAERS Safety Report 9558184 (Version 2)
Quarter: 2013Q3

REPORT INFORMATION
  Report Type: Spontaneous
  Country: US (occurrence: US)
  Receive Date: 20130926
  Receipt Date: 20130926
  Transmission Date: 20140515
  Serious: No
  Sender: FDA-Public Use
  Company Number: US-BIOGENIDEC-2013BI042467

PATIENT
  Age: 48 Year
  Sex: Female

DRUGS (5)
  1. TECFIDERA [Suspect]
     Indication: MULTIPLE SCLEROSIS
     Route: 048
     Dates: start: 20130503, end: 20130503
  2. AMLODIPINE [Concomitant]
     Indication: HYPERTENSION
     Dates: start: 2012
  3. ASPIRIN [Concomitant]
     Indication: ATRIAL FIBRILLATION
  4. LEXAPRO [Concomitant]
     Indication: DEPRESSION
  5. CARVEDILOL [Concomitant]
     Indication: CARDIAC DISORDER

REACTIONS (6)
  - Hypersensitivity [Recovered/Resolved]
  - Feeling hot [Recovered/Resolved]
  - Chills [Recovered/Resolved]
  - Flushing [Not Recovered/Not Resolved]
  - Nausea [Not Recovered/Not Resolved]
  - Dizziness [Not Recovered/Not Resolved]
